FAERS Safety Report 11265853 (Version 2)
Quarter: 2015Q3

REPORT INFORMATION
  Report Type: Report from Study
  Country: GT (occurrence: GT)
  Receive Date: 20150713
  Receipt Date: 20150810
  Transmission Date: 20151125
  Serious: Yes (Hospitalization)
  Sender: FDA-Public Use
  Company Number: GT-ABBVIE-15K-069-1424288-00

PATIENT
  Sex: Male

DRUGS (2)
  1. HUMIRA [Suspect]
     Active Substance: ADALIMUMAB
     Route: 058
     Dates: start: 20150721
  2. HUMIRA [Suspect]
     Active Substance: ADALIMUMAB
     Indication: ANKYLOSING SPONDYLITIS
     Route: 058
     Dates: start: 20110210, end: 201505

REACTIONS (9)
  - Surgery [Unknown]
  - Gallbladder disorder [Unknown]
  - Pancreatitis [Unknown]
  - Pallor [Unknown]
  - Weight decreased [Unknown]
  - Disease complication [Unknown]
  - Pyrexia [Unknown]
  - Mobility decreased [Unknown]
  - Arthralgia [Unknown]
